FAERS Safety Report 16336986 (Version 1)
Quarter: 2019Q2

REPORT INFORMATION
  Report Type: Spontaneous
  Country: US (occurrence: US)
  Receive Date: 20190520
  Receipt Date: 20190520
  Transmission Date: 20190711
  Serious: No
  Sender: FDA-Public Use
  Company Number: None

PATIENT
  Age: 25 Year
  Sex: Female
  Weight: 58.5 kg

DRUGS (1)
  1. PROVIGIL [Suspect]
     Active Substance: MODAFINIL
     Indication: FATIGUE
     Dosage: ?          QUANTITY:45 TABLET(S);?
     Route: 048
     Dates: start: 20181214, end: 20190411

REACTIONS (8)
  - Vision blurred [None]
  - Blepharospasm [None]
  - Product substitution issue [None]
  - Tremor [None]
  - Anxiety [None]
  - Impaired quality of life [None]
  - Product quality issue [None]
  - Dissociation [None]

NARRATIVE: CASE EVENT DATE: 20181214
